FAERS Safety Report 6801685-2 (Version None)
Quarter: 2010Q2

REPORT INFORMATION
  Report Type: 
  Country: None (occurrence: None)
  Receive Date: 20100629
  Receipt Date: 20100623
  Transmission Date: 20101027
  Serious: Yes (Disabling)
  Sender: FDA-Public Use
  Company Number: JP-ASTRAZENECA-2010SE28921

PATIENT
  Age: 77 Year
  Sex: Female

DRUGS (3)
  1. CRESTOR [Suspect]
     Route: 048
     Dates: start: 20090502
  2. WARFARIN SODIUM [Interacting]
     Route: 048
  3. ASPIRIN [Concomitant]
     Route: 048

REACTIONS (3)
  - DRUG INTERACTION [None]
  - EPISTAXIS [None]
  - GINGIVAL BLEEDING [None]
